FAERS Safety Report 12217478 (Version 1)
Quarter: 2016Q1

REPORT INFORMATION
  Report Type: Spontaneous
  Country: US (occurrence: None)
  Receive Date: 20160328
  Receipt Date: 20160328
  Transmission Date: 20160526
  Serious: Yes (Other)
  Sender: FDA-Public Use
  Company Number: None

PATIENT
  Age: 78 Year
  Sex: Female
  Weight: 63.05 kg

DRUGS (1)
  1. MYLERAN [Suspect]
     Active Substance: BUSULFAN
     Indication: MYELOID LEUKAEMIA
     Route: 048

REACTIONS (2)
  - Tachycardia [None]
  - Terminal insomnia [None]

NARRATIVE: CASE EVENT DATE: 20160318
